FAERS Safety Report 19934742 (Version 1)
Quarter: 2021Q4

REPORT INFORMATION
  Report Type: Spontaneous
  Country: RU (occurrence: RU)
  Receive Date: 20211009
  Receipt Date: 20211009
  Transmission Date: 20220303
  Serious: Yes (Other)
  Sender: FDA-Public Use
  Company Number: RU-UCBSA-2021047746

PATIENT
  Age: 45 Year
  Sex: Female

DRUGS (1)
  1. VIMPAT [Suspect]
     Active Substance: LACOSAMIDE
     Indication: Partial seizures
     Dosage: 300 MILLIGRAMS PER DAY (4.6 MG/KG)

REACTIONS (4)
  - Epilepsy [Recovering/Resolving]
  - Generalised tonic-clonic seizure [Recovering/Resolving]
  - Myoclonic epilepsy [Recovering/Resolving]
  - Therapeutic product effect incomplete [Unknown]
